FAERS Safety Report 8926599 (Version 1)
Quarter: 2012Q4

REPORT INFORMATION
  Report Type: 
  Country: IE (occurrence: IE)
  Receive Date: 20121127
  Receipt Date: 20121127
  Transmission Date: 20130627
  Serious: Yes (Other)
  Sender: FDA-Public Use
  Company Number: PHHY2012IE108242

PATIENT
  Sex: Female

DRUGS (1)
  1. GILENYA [Suspect]
     Indication: MULTIPLE SCLEROSIS
     Dosage: 0.5 mg, QD
     Route: 048
     Dates: start: 20120628

REACTIONS (7)
  - Ankle fracture [Unknown]
  - Ligament rupture [Unknown]
  - Head injury [Unknown]
  - Fall [Unknown]
  - Hypotension [Unknown]
  - Vertigo [Unknown]
  - Dizziness [Unknown]
